FAERS Safety Report 23724820 (Version 2)
Quarter: 2024Q4

REPORT INFORMATION
  Report Type: Report from Study
  Country: PT (occurrence: PT)
  Receive Date: 20240409
  Receipt Date: 20241021
  Transmission Date: 20250114
  Serious: Yes (Other)
  Sender: ABBVIE
  Company Number: PT-ABBVIE-5710878

PATIENT
  Age: 79 Year
  Sex: Female

DRUGS (6)
  1. CARBIDOPA\LEVODOPA [Suspect]
     Active Substance: CARBIDOPA\LEVODOPA
     Indication: Parkinson^s disease
     Dosage: 20 MG + 5 MG; LAST ADMIN DATE-2023; MORNING:11.8CC;MAIN:4.9CC/H;EXTRA:1CC
     Route: 050
     Dates: start: 20230130
  2. CARBIDOPA\LEVODOPA [Suspect]
     Active Substance: CARBIDOPA\LEVODOPA
     Dosage: 20 MG + 5 MG; MORNING:7CC;MAIN:1.8CC/H;EXTRA:3CC; RESTARTED IN 2023
     Route: 050
  3. FOLIC ACID [Concomitant]
     Active Substance: FOLIC ACID
     Indication: Product used for unknown indication
     Dosage: 0.4 MG + 0.002 MG?1 TABLET AT LUNCH?START DATE TEXT: AFTER DUODOPA
     Route: 048
  4. BENSERAZIDE HYDROCHLORIDE\LEVODOPA [Concomitant]
     Active Substance: BENSERAZIDE HYDROCHLORIDE\LEVODOPA
     Indication: Parkinson^s disease
     Dosage: 2 TABLET; FORM STRENGTH: 10 MG; FREQUENCY TEXT: AT BEDTIME; START DATE TEXT: BEFORE DUODOPA
     Route: 048
  5. ESCITALOPRAM [Concomitant]
     Active Substance: ESCITALOPRAM OXALATE
     Indication: Product used for unknown indication
     Dosage: 0.5 TABLET; IN THE MORNING; FORM STRENGTH: 10 MILLIGRAM; START DATE TEXT: BEFORE DUODOPA
     Route: 048
  6. CYANOCOBALAMIN [Concomitant]
     Active Substance: CYANOCOBALAMIN
     Indication: Product used for unknown indication
     Dosage: 0.4 MG + 0.002 MG?1 TABLET AT LUNCH?AFTER DUODOPA
     Route: 048

REACTIONS (3)
  - Wrist fracture [Recovered/Resolved]
  - Fall [Recovered/Resolved]
  - Joint swelling [Recovered/Resolved]

NARRATIVE: CASE EVENT DATE: 20240407
